FAERS Safety Report 11632996 (Version 1)
Quarter: 2015Q4

REPORT INFORMATION
  Report Type: Spontaneous
  Country: US (occurrence: None)
  Receive Date: 20151014
  Receipt Date: 20151014
  Transmission Date: 20160304
  Serious: Yes (Life-Threatening, Disabling)
  Sender: FDA-Public Use
  Company Number: None

PATIENT
  Age: 23 Year
  Sex: Female
  Weight: 48.54 kg

DRUGS (4)
  1. CELEXA [Suspect]
     Active Substance: CITALOPRAM HYDROBROMIDE
     Indication: DEPRESSION
     Dosage: 10-40 AKK ?1 PILL^1 A DAT ?BY MOUTH
     Route: 048
     Dates: end: 2010
  2. CELEXA [Suspect]
     Active Substance: CITALOPRAM HYDROBROMIDE
     Indication: PAIN
     Dosage: 10-40 AKK ?1 PILL^1 A DAT ?BY MOUTH
     Route: 048
     Dates: end: 2010
  3. MULTI-VITAMINS (CALCIUM PANTOTHENATE, FOLIC ACID, VITAMINS NOS) [Concomitant]
     Active Substance: VITAMINS
  4. CELEXA [Suspect]
     Active Substance: CITALOPRAM HYDROBROMIDE
     Indication: ANXIETY
     Dosage: 10-40 AKK ?1 PILL^1 A DAT ?BY MOUTH
     Route: 048
     Dates: end: 2010

REACTIONS (9)
  - Fatigue [None]
  - Cerebrovascular accident [None]
  - Headache [None]
  - Insomnia [None]
  - Muscle spasms [None]
  - Eye haemorrhage [None]
  - Dyskinesia [None]
  - Abnormal behaviour [None]
  - Loss of employment [None]

NARRATIVE: CASE EVENT DATE: 2004
